FAERS Safety Report 25462000 (Version 1)
Quarter: 2025Q2

REPORT INFORMATION
  Report Type: Spontaneous
  Country: US (occurrence: US)
  Receive Date: 20250620
  Receipt Date: 20250620
  Transmission Date: 20250717
  Serious: No
  Sender: AVKARE
  Company Number: US-AvKARE-2179078

PATIENT
  Sex: Female

DRUGS (1)
  1. POLYVINYL ALCOHOL [Suspect]
     Active Substance: POLYVINYL ALCOHOL

REACTIONS (1)
  - Eye pain [Unknown]
